FAERS Safety Report 12808216 (Version 1)
Quarter: 2016Q4

REPORT INFORMATION
  Report Type: Spontaneous
  Country: US (occurrence: US)
  Receive Date: 20161004
  Receipt Date: 20161004
  Transmission Date: 20170207
  Serious: No
  Sender: FDA-Public Use
  Company Number: US-PFIZER INC-2016461412

PATIENT
  Age: 48 Year
  Sex: Male

DRUGS (1)
  1. BOSULIF [Suspect]
     Active Substance: BOSUTINIB MONOHYDRATE
     Indication: CHRONIC MYELOID LEUKAEMIA
     Dosage: 500 MG, DAILY, (IN THE MORNING WITH FOOD)
     Route: 048
     Dates: start: 20160927

REACTIONS (3)
  - Diarrhoea [Unknown]
  - Abdominal discomfort [Unknown]
  - Muscle spasms [Unknown]
